FAERS Safety Report 11714097 (Version 4)
Quarter: 2016Q1

REPORT INFORMATION
  Report Type: Report from Study
  Country: US (occurrence: US)
  Receive Date: 20151109
  Receipt Date: 20160115
  Transmission Date: 20160525
  Serious: Yes (Hospitalization, Other)
  Sender: FDA-Public Use
  Company Number: US-GILEAD-2015-0179665

PATIENT
  Age: 47 Year
  Sex: Female

DRUGS (4)
  1. AMBRISENTAN [Suspect]
     Active Substance: AMBRISENTAN
     Indication: PULMONARY HYPERTENSION
     Dosage: 10 MG, QD
     Route: 065
     Dates: start: 20130404
  2. AMBRISENTAN [Suspect]
     Active Substance: AMBRISENTAN
     Indication: DRUG ABUSE
  3. REVATIO [Concomitant]
     Active Substance: SILDENAFIL CITRATE
  4. REMODULIN [Suspect]
     Active Substance: TREPROSTINIL
     Indication: PRODUCT USED FOR UNKNOWN INDICATION
     Route: 065

REACTIONS (9)
  - Infusion site cellulitis [Unknown]
  - Infusion site exfoliation [Unknown]
  - Malaise [Unknown]
  - Infusion site erythema [Not Recovered/Not Resolved]
  - Sepsis [Unknown]
  - Infusion site pain [Unknown]
  - Infusion site discharge [Not Recovered/Not Resolved]
  - Central venous catheterisation [Unknown]
  - Infusion site pruritus [Not Recovered/Not Resolved]
